FAERS Safety Report 21222083 (Version 1)
Quarter: 2022Q3

REPORT INFORMATION
  Report Type: Spontaneous
  Country: LT (occurrence: LT)
  Receive Date: 20220817
  Receipt Date: 20220817
  Transmission Date: 20221026
  Serious: Yes (Hospitalization)
  Sender: FDA-Public Use
  Company Number: LT-Orion Corporation ORION PHARMA-QUET2022-0013

PATIENT
  Age: 57 Year
  Sex: Female

DRUGS (32)
  1. OLANZAPINE [Suspect]
     Active Substance: OLANZAPINE
     Indication: Parkinson^s disease psychosis
     Dosage: 15 MILLIGRAM, QD, UP TO 15 MG
     Route: 065
  2. OLANZAPINE [Suspect]
     Active Substance: OLANZAPINE
     Dosage: 2.5 MILLIGRAM, QD
     Route: 065
  3. OLANZAPINE [Suspect]
     Active Substance: OLANZAPINE
     Dosage: 10 MILLIGRAM, QD
     Route: 065
  4. MIRTAZAPINE [Suspect]
     Active Substance: MIRTAZAPINE
     Indication: Parkinson^s disease psychosis
     Dosage: 30 MILLIGRAM, QD
     Route: 065
  5. MIRTAZAPINE [Suspect]
     Active Substance: MIRTAZAPINE
     Indication: Prophylaxis
     Dosage: 30 MILLIGRAM, QD
     Route: 065
  6. MIRTAZAPINE [Suspect]
     Active Substance: MIRTAZAPINE
     Dosage: 15 MILLIGRAM, QD
     Route: 065
  7. TRIHEXYPHENIDYL [Suspect]
     Active Substance: TRIHEXYPHENIDYL
     Indication: Prophylaxis
     Dosage: 4 MILLIGRAM, QD, UP TO 4 MG
     Route: 065
  8. ROPINIROLE [Suspect]
     Active Substance: ROPINIROLE
     Indication: Parkinson^s disease
     Dosage: 8 MILLIGRAM, QD, INCREASED TO 8 MG PER DAY
     Route: 065
  9. ROPINIROLE [Suspect]
     Active Substance: ROPINIROLE
     Dosage: 8 MILLIGRAM, QD
     Route: 065
  10. ROPINIROLE [Suspect]
     Active Substance: ROPINIROLE
     Dosage: 12 MILLIGRAM, QD, UP TO 12 MG PER DAY
     Route: 065
  11. ROPINIROLE [Suspect]
     Active Substance: ROPINIROLE
     Dosage: 4 MILLIGRAM, QD
     Route: 065
  12. ROPINIROLE [Suspect]
     Active Substance: ROPINIROLE
     Dosage: 2 MILLIGRAM, QW
     Route: 065
  13. ROPINIROLE [Suspect]
     Active Substance: ROPINIROLE
     Dosage: 20 MILLIGRAM, QD, UP TO 20 MG PER DAY
     Route: 065
  14. BENSERAZIDE [Suspect]
     Active Substance: BENSERAZIDE
     Indication: Parkinson^s disease
     Dosage: 25 MILLIGRAM, QD, FIVE TIMES A DAY
     Route: 065
  15. BENSERAZIDE [Suspect]
     Active Substance: BENSERAZIDE
     Indication: Parkinson^s disease
     Dosage: 100 MILLIGRAM, QD
     Route: 065
  16. BENSERAZIDE [Suspect]
     Active Substance: BENSERAZIDE
     Dosage: 25 MILLIGRAM, QD
     Route: 065
  17. BENSERAZIDE [Suspect]
     Active Substance: BENSERAZIDE
     Indication: Parkinson^s disease
     Dosage: 50 MILLIGRAM, QD, 25 MG EACH IN ONE CAPSULE IN THE MORNING AND IN THE EVENING
     Route: 065
  18. DIAZEPAM [Suspect]
     Active Substance: DIAZEPAM
     Indication: Parkinson^s disease psychosis
     Dosage: 10 MILLIGRAM, QD, UP TO 10 MG
     Route: 065
  19. DIAZEPAM [Suspect]
     Active Substance: DIAZEPAM
     Indication: Anxiety
     Dosage: 10 MILLIGRAM, QD, UP TO 10 MG
     Route: 065
  20. DIAZEPAM [Suspect]
     Active Substance: DIAZEPAM
     Indication: Tension
  21. CLOZAPINE [Suspect]
     Active Substance: CLOZAPINE
     Indication: Parkinson^s disease psychosis
     Dosage: 150 MILLIGRAM, QD, INCREASED UP TO 150 MG
     Route: 065
  22. CLOZAPINE [Suspect]
     Active Substance: CLOZAPINE
     Indication: Prophylaxis
     Dosage: 25 MILLIGRAM, QD
     Route: 065
  23. BROMAZEPAM [Suspect]
     Active Substance: BROMAZEPAM
     Indication: Parkinson^s disease psychosis
     Dosage: 6 MILLIGRAM, QD, UPTO 6 MG PER DAY
     Route: 065
  24. BROMAZEPAM [Suspect]
     Active Substance: BROMAZEPAM
     Indication: Prophylaxis
  25. SERTRALINE [Suspect]
     Active Substance: SERTRALINE HYDROCHLORIDE
     Indication: Depression
     Dosage: 150 MILLIGRAM, QD, UP TO 150 MG PER DAY
     Route: 065
  26. SERTRALINE [Suspect]
     Active Substance: SERTRALINE HYDROCHLORIDE
     Dosage: 125 MILLIGRAM, QD, IN THE MORNING
     Route: 065
  27. LEVODOPA [Suspect]
     Active Substance: LEVODOPA
     Indication: Parkinson^s disease
     Dosage: 400 MILLIGRAM, QD
     Route: 065
  28. LEVODOPA [Suspect]
     Active Substance: LEVODOPA
     Indication: Parkinson^s disease
     Dosage: 100 MILLIGRAM, QD, FIVE TIMES A DAY
     Route: 065
  29. LEVODOPA [Suspect]
     Active Substance: LEVODOPA
     Indication: Parkinson^s disease
     Dosage: 200 MILLIGRAM, QD, 100 MG EACH IN ONE CAPSULE IN THE MORNING AND IN THE EVENING
     Route: 065
  30. QUETIAPINE [Suspect]
     Active Substance: QUETIAPINE
     Indication: Parkinson^s disease psychosis
     Dosage: 450 MILLIGRAM, QD, UP TO 450 MG
     Route: 065
  31. QUETIAPINE [Suspect]
     Active Substance: QUETIAPINE
     Indication: Depression
     Dosage: 25 MILLIGRAM, QD, AT NIGHT
     Route: 065
  32. QUETIAPINE [Suspect]
     Active Substance: QUETIAPINE
     Dosage: 25 MILLIGRAM, QD
     Route: 065

REACTIONS (7)
  - Hypotension [Unknown]
  - Mental disorder [Not Recovered/Not Resolved]
  - Off label use [Unknown]
  - Intentional product misuse [Unknown]
  - Product use issue [Unknown]
  - Drug ineffective for unapproved indication [Unknown]
  - Overdose [Unknown]
